FAERS Safety Report 7965077-5 (Version None)
Quarter: 2011Q4

REPORT INFORMATION
  Report Type: 
  Country: None (occurrence: None)
  Receive Date: 20111208
  Receipt Date: 20111003
  Transmission Date: 20120403
  Serious: Yes (Life-Threatening)
  Sender: FDA-Public Use
  Company Number: NO-ROCHE-563315

PATIENT
  Sex: Male
  Weight: 80 kg

DRUGS (5)
  1. OXYCONTIN [Concomitant]
  2. AVASTIN [Suspect]
     Indication: METASTATIC MALIGNANT MELANOMA
     Dosage: 10MG/KG
     Route: 042
     Dates: start: 20080421, end: 20080506
  3. ACETAMINOPHEN [Concomitant]
  4. OXYCODONE HCL [Concomitant]
  5. DIOVAN [Concomitant]

REACTIONS (1)
  - ANAPHYLACTIC REACTION [None]
